FAERS Safety Report 15258529 (Version 2)
Quarter: 2018Q3

REPORT INFORMATION
  Report Type: Spontaneous
  Country: GB (occurrence: GB)
  Receive Date: 20180809
  Receipt Date: 20180820
  Transmission Date: 20181010
  Serious: Yes (Hospitalization)
  Sender: FDA-Public Use
  Company Number: GB-EMD SERONO-9038529

PATIENT
  Age: 8 Year
  Sex: Male

DRUGS (1)
  1. SAIZEN [Suspect]
     Active Substance: SOMATROPIN
     Indication: PRODUCT USED FOR UNKNOWN INDICATION
     Dosage: VIAL
     Route: 058
     Dates: start: 2011

REACTIONS (6)
  - Suicidal ideation [Unknown]
  - Social problem [Not Recovered/Not Resolved]
  - Mood altered [Not Recovered/Not Resolved]
  - Drug dose omission [Recovered/Resolved]
  - Self esteem decreased [Not Recovered/Not Resolved]
  - Product supply issue [Recovered/Resolved]

NARRATIVE: CASE EVENT DATE: 201712
